FAERS Safety Report 4416720-9 (Version None)
Quarter: 2004Q3

REPORT INFORMATION
  Report Type: 
  Country: None (occurrence: None)
  Receive Date: 20040802
  Receipt Date: 20040720
  Transmission Date: 20050211
  Serious: Yes (Hospitalization)
  Sender: FDA-Public Use
  Company Number: 2004-BP-06031BP

PATIENT
  Sex: Female

DRUGS (1)
  1. SPIRIVA [Suspect]
     Dosage: 18 MCG (18 MCG),IH
     Route: 055
     Dates: start: 20040719, end: 20040719

REACTIONS (4)
  - CHEST PAIN [None]
  - CONFUSIONAL STATE [None]
  - TACHYCARDIA [None]
  - TREMOR [None]
